FAERS Safety Report 20412830 (Version 3)
Quarter: 2022Q1

REPORT INFORMATION
  Report Type: Spontaneous
  Country: JP (occurrence: JP)
  Receive Date: 20220201
  Receipt Date: 20220331
  Transmission Date: 20220423
  Serious: Yes (Death, Hospitalization)
  Sender: FDA-Public Use
  Company Number: JP-PFIZER INC-202200114196

PATIENT
  Age: 69 Year
  Sex: Female
  Weight: 67.2 kg

DRUGS (6)
  1. INLYTA [Suspect]
     Active Substance: AXITINIB
     Indication: Metastatic renal cell carcinoma
     Dosage: 5 MG, 2X/DAY
     Route: 048
     Dates: start: 20200512, end: 20200608
  2. BAVENCIO [Suspect]
     Active Substance: AVELUMAB
     Indication: Metastatic renal cell carcinoma
     Dosage: 650MG (10 MG/KG), EVERY 2 WEEKS
     Route: 042
     Dates: start: 20200512
  3. BAVENCIO [Suspect]
     Active Substance: AVELUMAB
     Dosage: 590 MG, EVERY 2 WEEKS
     Dates: start: 20200529, end: 20200608
  4. AMLODIPINE [Concomitant]
     Active Substance: AMLODIPINE BESYLATE
     Dosage: 5 MG, 1X/DAY
     Route: 048
     Dates: start: 20200507
  5. CANDESARTAN [Concomitant]
     Active Substance: CANDESARTAN
     Dosage: 2 MG, 1X/DAY
     Route: 048
     Dates: start: 20200507
  6. PRAVASTATIN [Concomitant]
     Active Substance: PRAVASTATIN
     Dosage: 10 MG, 1X/DAY
     Route: 048
     Dates: start: 20200507

REACTIONS (4)
  - Neoplasm progression [Fatal]
  - Diarrhoea [Recovering/Resolving]
  - Vomiting [Recovering/Resolving]
  - Stomatitis [Recovering/Resolving]

NARRATIVE: CASE EVENT DATE: 20200529
